FAERS Safety Report 9039286 (Version 1)
Quarter: 2013Q1

REPORT INFORMATION
  Report Type: Report from Study
  Country: US (occurrence: US)
  Receive Date: 20130129
  Receipt Date: 20130129
  Transmission Date: 20140127
  Serious: No
  Sender: FDA-Public Use
  Company Number: US-ABBOTT-12P-163-0934414-00

PATIENT
  Age: 55 Year
  Sex: Male

DRUGS (6)
  1. HUMIRA 40 MG/0.8 ML PEN [Suspect]
     Indication: PSORIATIC ARTHROPATHY
     Dates: start: 20120424
  2. CELEBREX [Concomitant]
     Indication: ARTHRITIS
  3. ALLOPURINOL [Concomitant]
     Indication: GOUT
     Dosage: 300MG DAILY
  4. SPIRONOLACTONE [Concomitant]
     Indication: HYPERTENSION
     Dosage: 25MG DAILY
  5. TOPROL [Concomitant]
     Indication: HYPERTENSION
     Dosage: 100MG DAILY
  6. LOTREL [Concomitant]
     Indication: HYPERTENSION
     Dosage: 5/20MG TWICE DAILY

REACTIONS (4)
  - Feeling jittery [Recovered/Resolved]
  - Feeling abnormal [Recovered/Resolved]
  - Nervousness [Recovered/Resolved]
  - Injection site pain [Recovered/Resolved]
